FAERS Safety Report 20381875 (Version 1)
Quarter: 2022Q1

REPORT INFORMATION
  Report Type: Spontaneous
  Country: US (occurrence: None)
  Receive Date: 20220126
  Receipt Date: 20220126
  Transmission Date: 20220423
  Serious: No
  Sender: FDA-Public Use
  Company Number: None

PATIENT
  Sex: Female

DRUGS (1)
  1. ADCIRCA [Suspect]
     Active Substance: TADALAFIL
     Indication: Pulmonary arterial hypertension
     Dosage: 40MG ONCE DAILY ORAL?
     Route: 048
     Dates: start: 20190912

REACTIONS (5)
  - Therapy interrupted [None]
  - COVID-19 [None]
  - Dyspnoea [None]
  - Feeling abnormal [None]
  - Loss of personal independence in daily activities [None]
